FAERS Safety Report 22223971 (Version 1)
Quarter: 2023Q2

REPORT INFORMATION
  Report Type: Spontaneous
  Country: US (occurrence: US)
  Receive Date: 20230418
  Receipt Date: 20230418
  Transmission Date: 20230722
  Serious: Yes (Death)
  Sender: FDA-Public Use
  Company Number: US-PFIZER INC-202300159791

PATIENT
  Age: 54 Year
  Sex: Male

DRUGS (1)
  1. INLYTA [Suspect]
     Active Substance: AXITINIB
     Dosage: 1 TABLET (5 MG) IN MORNING AND TAKE 1 TABLET OF 5 MG WITH 2 TABLETS OF 1 MG (7 MG TOTAL) IN EVE
     Dates: start: 20220228

REACTIONS (2)
  - Death [Fatal]
  - Off label use [Unknown]

NARRATIVE: CASE EVENT DATE: 20220228
